FAERS Safety Report 4911803-9 (Version None)
Quarter: 2006Q1

REPORT INFORMATION
  Report Type: 
  Country: None (occurrence: None)
  Receive Date: 20060213
  Receipt Date: 20060213
  Transmission Date: 20060701
  Serious: Yes (Other)
  Sender: FDA-Public Use
  Company Number: None

PATIENT
  Age: 52 Year
  Sex: Male
  Weight: 97.5234 kg

DRUGS (4)
  1. DEPO-MEDROL [Suspect]
     Indication: BACK DISORDER
     Dosage: 80 MG TWICE EPIDURAL, 40 MG ONCE
     Route: 008
     Dates: start: 20051210, end: 20051231
  2. DEPO-MEDROL [Suspect]
     Indication: INFLAMMATION
     Dosage: 80 MG TWICE EPIDURAL, 40 MG ONCE
     Route: 008
     Dates: start: 20051210, end: 20051231
  3. DEPO-MEDROL [Suspect]
     Indication: BACK DISORDER
     Dosage: 80 MG TWICE EPIDURAL, 40 MG ONCE
     Route: 008
     Dates: start: 20060207, end: 20060207
  4. DEPO-MEDROL [Suspect]
     Indication: INFLAMMATION
     Dosage: 80 MG TWICE EPIDURAL, 40 MG ONCE
     Route: 008
     Dates: start: 20060207, end: 20060207

REACTIONS (5)
  - BURNING SENSATION [None]
  - FEELING HOT [None]
  - HYPOAESTHESIA [None]
  - PAIN IN EXTREMITY [None]
  - POST PROCEDURAL COMPLICATION [None]
